FAERS Safety Report 14681845 (Version 1)
Quarter: 2018Q1

REPORT INFORMATION
  Report Type: Spontaneous
  Country: US (occurrence: US)
  Receive Date: 20180326
  Receipt Date: 20180326
  Transmission Date: 20180509
  Serious: Yes (Other)
  Sender: FDA-Public Use
  Company Number: US-JAZZ-2017-US-004299

PATIENT
  Age: 46 Year
  Sex: Male

DRUGS (5)
  1. CLOZAPINE. [Suspect]
     Active Substance: CLOZAPINE
     Indication: SCHIZOAFFECTIVE DISORDER
     Dosage: 150 MG, QD
     Route: 048
  2. CEFOXITIN [Suspect]
     Active Substance: CEFOXITIN SODIUM
  3. RISPERIDONE. [Concomitant]
     Active Substance: RISPERIDONE
  4. DIVALPROEX [Suspect]
     Active Substance: DIVALPROEX SODIUM
  5. LITHIUM. [Suspect]
     Active Substance: LITHIUM

REACTIONS (2)
  - Pancreatitis [Recovered/Resolved]
  - Tubulointerstitial nephritis [Recovered/Resolved]
